FAERS Safety Report 6214940-4 (Version None)
Quarter: 2009Q2

REPORT INFORMATION
  Report Type: 
  Country: None (occurrence: None)
  Receive Date: 20090604
  Receipt Date: 20090528
  Transmission Date: 20091009
  Serious: Yes (Hospitalization)
  Sender: FDA-Public Use
  Company Number: US-AVENTIS-200914525GDDC

PATIENT
  Age: 61 Year
  Sex: Female
  Weight: 119.75 kg

DRUGS (13)
  1. DOCETAXEL [Suspect]
     Route: 042
     Dates: start: 20090401, end: 20090427
  2. CYTOXAN [Suspect]
     Route: 042
     Dates: start: 20090401, end: 20090427
  3. ADRIAMYCIN PFS [Suspect]
     Route: 042
     Dates: start: 20090401, end: 20090427
  4. DEXAMETHASONE [Concomitant]
     Route: 048
     Dates: start: 20090331, end: 20090402
  5. DEXAMETHASONE [Concomitant]
     Route: 042
     Dates: start: 20090401, end: 20090401
  6. DEXAMETHASONE [Concomitant]
     Route: 048
     Dates: start: 20090426, end: 20090426
  7. DEXAMETHASONE [Concomitant]
     Route: 042
     Dates: start: 20090427, end: 20090427
  8. ALOXI [Concomitant]
     Dosage: DOSE QUANTITY: 0.25
     Route: 042
     Dates: start: 20090401, end: 20090401
  9. ALOXI [Concomitant]
     Route: 042
     Dates: start: 20090427, end: 20090427
  10. ATIVAN [Concomitant]
     Dosage: DOSE: 1 MG Q6-8H
     Route: 048
  11. DILAUDID [Concomitant]
     Dates: start: 20090408, end: 20090408
  12. LEVAQUIN [Concomitant]
     Dates: start: 20090408
  13. PEGFILGRASTIM [Concomitant]
     Dates: start: 20090402

REACTIONS (1)
  - BIPOLAR DISORDER [None]
